FAERS Safety Report 9008799 (Version 1)
Quarter: 2013Q1

REPORT INFORMATION
  Report Type: Spontaneous
  Country: US (occurrence: US)
  Receive Date: 20130111
  Receipt Date: 20130111
  Transmission Date: 20140127
  Serious: Yes (Other)
  Sender: FDA-Public Use
  Company Number: US-009507513-1301USA001833

PATIENT
  Age: 74 Year
  Sex: Male

DRUGS (6)
  1. SINGULAIR [Suspect]
     Dosage: 10 MG, QD
  2. DILTIAZEM HYDROCHLORIDE [Suspect]
     Dosage: 120 MG, QD
     Route: 048
  3. SENTURY-VITE [Suspect]
     Dosage: 1 DOSE FORM, QD
     Route: 048
  4. K-DUR [Suspect]
     Dosage: 20 MEQ, QD
     Route: 048
  5. ZESTRIL [Suspect]
     Dosage: 1.5 MG, QD
     Route: 048
  6. BUMEX [Suspect]
     Dosage: 0.5 MG, QD
     Route: 048

REACTIONS (1)
  - Alopecia [Unknown]
